FAERS Safety Report 4781726-7 (Version None)
Quarter: 2005Q3

REPORT INFORMATION
  Report Type: 
  Country: None (occurrence: None)
  Receive Date: 20050927
  Receipt Date: 20050913
  Transmission Date: 20060218
  Serious: Yes (Other)
  Sender: FDA-Public Use
  Company Number: 2005127198

PATIENT
  Age: 42 Year
  Sex: Female
  Weight: 64.4108 kg

DRUGS (2)
  1. BENADRYL ALLERGY SINUS HEADACHE (DIPHENHYDRAMINE, PARACETAMOL, PSEUDOE [Suspect]
     Indication: HYPERSENSITIVITY
     Dosage: 1-2 CAPLETS EVERY 6 HOURS, ORAL
     Route: 048
     Dates: start: 20050801
  2. 4-WAY NASAL SPRAY (MEPYRAMINE MALEATE, NAPHAZOLINE HYDROCHLORIDE, PHEN [Suspect]
     Indication: HYPERSENSITIVITY
     Dosage: ONE SPRAY PER NOSTRIL, NASAL
     Route: 045

REACTIONS (8)
  - AMNESIA [None]
  - CONDITION AGGRAVATED [None]
  - DRUG INEFFECTIVE [None]
  - FATIGUE [None]
  - GLOSSODYNIA [None]
  - GRAND MAL CONVULSION [None]
  - SOMNOLENCE [None]
  - TONGUE BITING [None]
